FAERS Safety Report 8358626-9 (Version None)
Quarter: 2012Q2

REPORT INFORMATION
  Report Type: 
  Country: None (occurrence: None)
  Receive Date: 20120514
  Receipt Date: 20120511
  Transmission Date: 20120825
  Serious: Yes (Hospitalization)
  Sender: FDA-Public Use
  Company Number: US-ROCHE-1018008

PATIENT
  Sex: Female
  Weight: 63.106 kg

DRUGS (13)
  1. XELODA [Suspect]
     Indication: COLON CANCER
     Route: 048
     Dates: start: 20111031, end: 20111112
  2. AMBIEN [Concomitant]
     Route: 048
  3. LOVENOX [Concomitant]
     Indication: THROMBOSIS PROPHYLAXIS
  4. PRILOSEC [Concomitant]
     Indication: GASTROOESOPHAGEAL REFLUX DISEASE
     Route: 048
  5. TYLENOL (CAPLET) [Concomitant]
  6. M.V.I. [Concomitant]
  7. NEUPOGEN [Concomitant]
     Indication: WHITE BLOOD CELL COUNT DECREASED
  8. ATIVAN [Concomitant]
     Indication: ANXIETY
     Route: 048
  9. TRICOR [Concomitant]
     Route: 048
  10. ZOFRAN [Concomitant]
     Indication: NAUSEA
     Route: 048
  11. EFFEXOR [Concomitant]
     Route: 048
  12. REGLAN [Concomitant]
     Indication: NAUSEA
     Route: 048
  13. VICODIN [Concomitant]
     Dosage: 5/500 MG, 1-2 TABLETS
     Route: 048

REACTIONS (7)
  - DEHYDRATION [None]
  - ABDOMINAL PAIN [None]
  - BLOOD ELECTROLYTES DECREASED [None]
  - VOMITING [None]
  - DIARRHOEA [None]
  - NAUSEA [None]
  - FAILURE TO THRIVE [None]
